FAERS Safety Report 8048806-4 (Version None)
Quarter: 2012Q1

REPORT INFORMATION
  Report Type: 
  Country: None (occurrence: None)
  Receive Date: 20120117
  Receipt Date: 20120110
  Transmission Date: 20120608
  Serious: Yes (Hospitalization)
  Sender: FDA-Public Use
  Company Number: BR-BAYER-2012-003659

PATIENT
  Age: 84 Year
  Sex: Female

DRUGS (4)
  1. ACETYLSALICYLIC ACID SRT [Suspect]
     Indication: HEADACHE
     Dosage: 500 MG, UNK
     Route: 048
     Dates: start: 20060804, end: 20060801
  2. ANTIHYPERTENSIVES [Concomitant]
  3. BENZODIAZEPINE [Concomitant]
  4. TIAZINE [Concomitant]

REACTIONS (3)
  - HAEMORRHAGE [None]
  - CONTUSION [None]
  - PETECHIAE [None]
